FAERS Safety Report 9752105 (Version 3)
Quarter: 2013Q4

REPORT INFORMATION
  Report Type: Spontaneous
  Country: JP (occurrence: JP)
  Receive Date: 20131213
  Receipt Date: 20131222
  Transmission Date: 20140711
  Serious: Yes (Death, Life-Threatening)
  Sender: FDA-Public Use
  Company Number: PHHY2013JP145064

PATIENT
  Age: 81 Year
  Sex: Male

DRUGS (3)
  1. NEORAL [Suspect]
     Dosage: 150 MG, DAILY
     Route: 048
     Dates: start: 20121031, end: 201301
  2. CORTICOSTEROIDS [Suspect]
     Route: 048
  3. ENDOXAN [Concomitant]
     Dosage: 500 MG, DAILY
     Route: 042
     Dates: start: 20121029, end: 20121119

REACTIONS (4)
  - B-cell lymphoma [Fatal]
  - Lymphadenopathy [Fatal]
  - Performance status decreased [Unknown]
  - Oedema peripheral [Unknown]
